FAERS Safety Report 4881877-2 (Version None)
Quarter: 2006Q1

REPORT INFORMATION
  Report Type: 
  Country: None (occurrence: None)
  Receive Date: 20060112
  Receipt Date: 20060112
  Transmission Date: 20060701
  Serious: Yes (Hospitalization)
  Sender: FDA-Public Use
  Company Number: None

PATIENT
  Age: 41 Year
  Sex: Female
  Weight: 78 kg

DRUGS (9)
  1. ETANERCEPT 25MG AMGEN [Suspect]
     Indication: RENAL FAILURE CHRONIC
     Dosage: 25 MG SC BIW
     Route: 058
     Dates: start: 20050906, end: 20051224
  2. EPOGEN [Concomitant]
  3. ZEMPLAR [Concomitant]
  4. LIPITOR [Concomitant]
  5. ASPIRIN [Concomitant]
  6. LANTUS [Concomitant]
  7. HUMALOG [Concomitant]
  8. ESOMEPRAZOLE [Concomitant]
  9. LABETALOL [Concomitant]

REACTIONS (1)
  - CARDIOVASCULAR DISORDER [None]
